FAERS Safety Report 9470448 (Version 3)
Quarter: 2013Q4

REPORT INFORMATION
  Report Type: Spontaneous
  Country: US (occurrence: US)
  Receive Date: 20130822
  Receipt Date: 20131017
  Transmission Date: 20140711
  Serious: Yes (Death, Life-Threatening, Hospitalization, Other)
  Sender: FDA-Public Use
  Company Number: US-009507513-1308USA009317

PATIENT
  Age: 51 Year
  Sex: 0
  Weight: 58.5 kg

DRUGS (1)
  1. EMEND FOR INJECTION [Suspect]
     Indication: PROPHYLAXIS OF NAUSEA AND VOMITING
     Dosage: 150 MG, QW
     Route: 042
     Dates: start: 20121004, end: 20130717

REACTIONS (5)
  - Head and neck cancer metastatic [Fatal]
  - Respiratory failure [Fatal]
  - Chronic obstructive pulmonary disease [Unknown]
  - Decubitus ulcer [Unknown]
  - Anaemia [Unknown]
